FAERS Safety Report 6420371-4 (Version None)
Quarter: 2009Q4

REPORT INFORMATION
  Report Type: 
  Country: None (occurrence: None)
  Receive Date: 20091021
  Receipt Date: 20090527
  Transmission Date: 20100525
  Serious: No
  Sender: FDA-Public Use
  Company Number: ALL1-2009-01481

PATIENT
  Sex: Male

DRUGS (1)
  1. VYVANSE [Suspect]
     Dosage: MG, ORAL
     Route: 048

REACTIONS (4)
  - DECREASED APPETITE [None]
  - DRUG EFFECT INCREASED [None]
  - NONSPECIFIC REACTION [None]
  - PSYCHOMOTOR HYPERACTIVITY [None]
